FAERS Safety Report 18450997 (Version 1)
Quarter: 2020Q4

REPORT INFORMATION
  Report Type: Spontaneous
  Country: US (occurrence: US)
  Receive Date: 20201030
  Receipt Date: 20201030
  Transmission Date: 20210114
  Serious: Yes (Other)
  Sender: FDA-Public Use
  Company Number: US-SEATTLE GENETICS-2020SGN04728

PATIENT
  Sex: Female

DRUGS (1)
  1. TUKYSA [Suspect]
     Active Substance: TUCATINIB
     Indication: BREAST CANCER METASTATIC

REACTIONS (6)
  - Hepatotoxicity [Unknown]
  - Disease progression [Unknown]
  - Diarrhoea [Unknown]
  - Cardiotoxicity [Unknown]
  - Teratogenicity [Unknown]
  - Pregnancy [Unknown]
